FAERS Safety Report 8590528-5 (Version None)
Quarter: 2012Q3

REPORT INFORMATION
  Report Type: 
  Country: None (occurrence: None)
  Receive Date: 20120813
  Receipt Date: 20120808
  Transmission Date: 20120928
  Serious: Yes (Hospitalization)
  Sender: FDA-Public Use
  Company Number: US-VERTEX PHARMACEUTICALS INC.-AE-2012-011859

PATIENT
  Age: 56 Year
  Sex: Male

DRUGS (3)
  1. PEGINTERFERON ALFA-2A [Concomitant]
     Indication: HEPATITIS C
  2. INCIVEK [Suspect]
     Indication: HEPATITIS C
     Route: 048
  3. RIBAVIRIN [Concomitant]
     Indication: HEPATITIS C

REACTIONS (1)
  - MENTAL STATUS CHANGES [None]
